FAERS Safety Report 11387465 (Version 2)
Quarter: 2015Q3

REPORT INFORMATION
  Report Type: Spontaneous
  Country: US (occurrence: US)
  Receive Date: 20150817
  Receipt Date: 20150819
  Transmission Date: 20151125
  Serious: Yes (Other)
  Sender: FDA-Public Use
  Company Number: US-SA-2015SA121310

PATIENT
  Sex: Female

DRUGS (1)
  1. ICY HOT [Suspect]
     Active Substance: MENTHOL\METHYL SALICYLATE
     Route: 065

REACTIONS (2)
  - Application site pain [Unknown]
  - Chemical injury [Unknown]
